FAERS Safety Report 22103186 (Version 1)
Quarter: 2023Q1

REPORT INFORMATION
  Report Type: Report from Study
  Country: BR (occurrence: BR)
  Receive Date: 20230316
  Receipt Date: 20230316
  Transmission Date: 20230418
  Serious: Yes (Death)
  Sender: FDA-Public Use
  Company Number: BR-AMRYT PHARMACEUTICALS DAC-AEGR006314

PATIENT

DRUGS (8)
  1. MYALEPT [Suspect]
     Active Substance: METRELEPTIN
     Indication: Congenital generalised lipodystrophy
     Dosage: 1.0 ML, QD
     Route: 058
     Dates: start: 20160713, end: 20160829
  2. MYALEPT [Suspect]
     Active Substance: METRELEPTIN
     Dosage: 1.1 ML, QD
     Route: 058
     Dates: start: 20160830, end: 201610
  3. MYALEPT [Suspect]
     Active Substance: METRELEPTIN
     Dosage: INCREASE DOSAGE IN INCREMENTS OF 0.25 ML/DAY TO MAX OF 1.75 ML/DAY
     Route: 058
     Dates: start: 20161027
  4. MYALEPT [Suspect]
     Active Substance: METRELEPTIN
     Dosage: 1.5 ML, QD
     Route: 058
     Dates: end: 201611
  5. MYALEPT [Suspect]
     Active Substance: METRELEPTIN
     Dosage: TAPER OFF METRELEPTIN
     Route: 058
     Dates: start: 201611, end: 20161114
  6. MYALEPT [Suspect]
     Active Substance: METRELEPTIN
     Dosage: 0.5 ML, QD
     Route: 058
     Dates: start: 20161115, end: 20161115
  7. MYALEPT [Suspect]
     Active Substance: METRELEPTIN
     Dosage: 0.25 ML, QD
     Route: 058
     Dates: start: 20161116, end: 20161118
  8. METFORMIN [Concomitant]
     Active Substance: METFORMIN HYDROCHLORIDE
     Indication: Diabetes mellitus
     Dosage: 850 MG, BID
     Route: 065

REACTIONS (1)
  - Death [Fatal]

NARRATIVE: CASE EVENT DATE: 20190617
